FAERS Safety Report 22394128 (Version 1)
Quarter: 2023Q2

REPORT INFORMATION
  Report Type: Spontaneous
  Country: US (occurrence: US)
  Receive Date: 20230601
  Receipt Date: 20230601
  Transmission Date: 20230721
  Serious: Yes (Other)
  Sender: FDA-Public Use
  Company Number: US-APIL-2315308US

PATIENT
  Age: 88 Year
  Sex: Female

DRUGS (2)
  1. BYSTOLIC [Suspect]
     Active Substance: NEBIVOLOL HYDROCHLORIDE
     Indication: Product used for unknown indication
  2. AMIODARONE [Concomitant]
     Active Substance: AMIODARONE

REACTIONS (7)
  - Myocardial infarction [Unknown]
  - Unevaluable event [Not Recovered/Not Resolved]
  - Stent placement [Not Recovered/Not Resolved]
  - Cardiac failure [Not Recovered/Not Resolved]
  - Chronic obstructive pulmonary disease [Not Recovered/Not Resolved]
  - Glomerular filtration rate abnormal [Not Recovered/Not Resolved]
  - Atrial fibrillation [Not Recovered/Not Resolved]
